FAERS Safety Report 7772810-4 (Version None)
Quarter: 2011Q3

REPORT INFORMATION
  Report Type: 
  Country: None (occurrence: None)
  Receive Date: 20110922
  Receipt Date: 20100803
  Transmission Date: 20111222
  Serious: Yes (Other)
  Sender: FDA-Public Use
  Company Number: US-ASTRAZENECA-2007UW25125

PATIENT
  Age: 58 Year
  Sex: Female
  Weight: 85.3 kg

DRUGS (25)
  1. DELTASONE [Concomitant]
     Dates: start: 20051121
  2. NORVASC [Concomitant]
     Dates: start: 20030722
  3. ATIVAN [Concomitant]
     Dosage: 3 - 4 MG
     Dates: start: 20030722
  4. LASIX [Concomitant]
     Route: 048
     Dates: start: 20060828
  5. LIPITOR [Concomitant]
     Dates: start: 20030624
  6. LITHIUM [Concomitant]
     Dosage: STRENGTH 150 - 300 MG, DOSE 450 MG TWO TIMES A DAY
     Dates: start: 20030722
  7. RISPERDAL [Concomitant]
     Indication: BIPOLAR DISORDER
     Dates: start: 20070101
  8. COGENTIN [Concomitant]
     Dosage: STRENGTH 1 MG/ML, DOSE 1 MG DAILY
  9. LANTUS [Concomitant]
     Dosage: 5 - 10 UNITS EVERY EVENING
     Dates: start: 20030722
  10. LOTEMAX [Concomitant]
     Dates: start: 20051114
  11. SYNTHROID [Concomitant]
     Dates: start: 20040106
  12. SEROQUEL [Suspect]
     Indication: INSOMNIA
     Dosage: 200MG-800MG
     Route: 048
     Dates: start: 20020101, end: 20070301
  13. SEROQUEL [Suspect]
     Dosage: 75 - 400 MG
     Route: 048
     Dates: start: 20010126
  14. SEROQUEL [Suspect]
     Dosage: 75 - 400 MG
     Route: 048
     Dates: start: 20010126
  15. DEPAKOTE [Concomitant]
     Dosage: STRENGTH 250 - 500 MG, DOSE - 750 - 1000 MG
     Route: 048
     Dates: start: 20011218
  16. RISPERDAL [Concomitant]
     Indication: INSOMNIA
     Dates: start: 20070101
  17. SEROQUEL [Suspect]
     Indication: BIPOLAR DISORDER
     Dosage: 200MG-800MG
     Route: 048
     Dates: start: 20020101, end: 20070301
  18. ARIPIPRAZOLE [Concomitant]
     Dosage: STRENGTH 5 - 10 MG, DOSE 10 MG DAILY
     Dates: start: 20051114, end: 20060101
  19. ATIVAN [Concomitant]
     Dosage: STRENGTH 4 MG/ML, DOSE 10 ML AS DIRECTED
  20. ACTOS [Concomitant]
     Dosage: STRENGTH 15 - 45 MG, DOSE - 45 MG DAILY
     Route: 048
     Dates: start: 20051121
  21. COGENTIN [Concomitant]
     Dates: start: 20030722
  22. COUMADIN [Concomitant]
     Dosage: STRENGTH 1 - 5 MG
     Dates: start: 20030722
  23. PRINZIDE [Concomitant]
     Dosage: 20 - 12.5 MG TWO TIMES A DAY
     Dates: start: 20030722
  24. GEODON [Concomitant]
     Dates: start: 20061208
  25. HALDOL [Concomitant]
     Dates: start: 20060101, end: 20070101

REACTIONS (6)
  - GLUCOSE TOLERANCE IMPAIRED [None]
  - TYPE 2 DIABETES MELLITUS [None]
  - HYPOGLYCAEMIA [None]
  - ACETONAEMIA [None]
  - DIABETIC COMA [None]
  - KETONURIA [None]
